FAERS Safety Report 14074837 (Version 2)
Quarter: 2018Q1

REPORT INFORMATION
  Report Type: Report from Study
  Country: BR (occurrence: BR)
  Receive Date: 20171011
  Receipt Date: 20180301
  Transmission Date: 20180508
  Serious: Yes (Other)
  Sender: FDA-Public Use
  Company Number: PHHY2017BR149501

PATIENT
  Sex: Female

DRUGS (1)
  1. ACLASTA [Suspect]
     Active Substance: ZOLEDRONIC ACID
     Indication: OSTEOPOROSIS
     Dosage: 1 DF, Q12MO
     Route: 042
     Dates: start: 201704

REACTIONS (4)
  - Gait disturbance [Unknown]
  - Hepatic steatosis [Not Recovered/Not Resolved]
  - Eating disorder [Unknown]
  - Cholelithiasis [Recovering/Resolving]
